FAERS Safety Report 19267194 (Version 2)
Quarter: 2021Q2

REPORT INFORMATION
  Report Type: Spontaneous
  Country: TW (occurrence: TW)
  Receive Date: 20210517
  Receipt Date: 20210525
  Transmission Date: 20210717
  Serious: Yes (Death, Other)
  Sender: FDA-Public Use
  Company Number: TW-ASTRAZENECA-2021A429776

PATIENT
  Age: 62 Year
  Sex: Female

DRUGS (10)
  1. GEMCITABINE. [Concomitant]
     Active Substance: GEMCITABINE
     Indication: OVARIAN CANCER
     Route: 065
  2. LYNPARZA [Suspect]
     Active Substance: OLAPARIB
     Indication: OVARIAN CANCER
     Route: 048
  3. BEVACIZUMAB. [Concomitant]
     Active Substance: BEVACIZUMAB
     Indication: OVARIAN CANCER
     Route: 065
  4. PEMETRXED [Concomitant]
     Indication: OVARIAN CANCER
     Route: 065
  5. TAMOXIFEN [Suspect]
     Active Substance: TAMOXIFEN
     Indication: OVARIAN CANCER
     Route: 048
     Dates: start: 201207
  6. PEMBROLIZUMAB. [Concomitant]
     Active Substance: PEMBROLIZUMAB
     Indication: OVARIAN CANCER
     Route: 065
     Dates: start: 201601
  7. CAPECITABINE. [Concomitant]
     Active Substance: CAPECITABINE
     Indication: OVARIAN CANCER
     Route: 065
  8. MEGESTROL [Concomitant]
     Active Substance: MEGESTROL
     Indication: OVARIAN CANCER
     Route: 065
  9. VINORELBINE [Concomitant]
     Active Substance: VINORELBINE TARTRATE
     Indication: OVARIAN CANCER
     Route: 065
  10. LIPOSOMAL DOXORUBICIN [Concomitant]
     Active Substance: DOXORUBICIN HYDROCHLORIDE
     Indication: OVARIAN CANCER
     Dosage: 30 MG/M2
     Route: 065

REACTIONS (3)
  - Metastases to retroperitoneum [Unknown]
  - Carbohydrate antigen 125 increased [Unknown]
  - Death [Fatal]

NARRATIVE: CASE EVENT DATE: 201305
